FAERS Safety Report 6496773-7 (Version None)
Quarter: 2009Q4

REPORT INFORMATION
  Report Type: 
  Country: None (occurrence: None)
  Receive Date: 20091125
  Receipt Date: 20090415
  Transmission Date: 20100525
  Serious: Yes (Hospitalization)
  Sender: FDA-Public Use
  Company Number: 2009BH006053

PATIENT
  Sex: Male

DRUGS (2)
  1. DIANEAL [Suspect]
     Indication: PERITONEAL DIALYSIS
     Dosage: 12 L; EVERY DAY; IP
     Route: 033
     Dates: end: 20090414
  2. DIANEAL [Suspect]
     Indication: PERITONEAL DIALYSIS
     Dosage: 2.5 L; EVERY DAY; IP
     Route: 033
     Dates: end: 20090414

REACTIONS (1)
  - ABDOMINAL PAIN [None]
